FAERS Safety Report 13886544 (Version 1)
Quarter: 2017Q3

REPORT INFORMATION
  Report Type: Spontaneous
  Country: US (occurrence: US)
  Receive Date: 20170821
  Receipt Date: 20170821
  Transmission Date: 20171127
  Serious: No
  Sender: FDA-Public Use
  Company Number: US-ALLERGAN-1674668US

PATIENT
  Age: 50 Year
  Sex: Male
  Weight: 62.13 kg

DRUGS (1)
  1. ANDRODERM [Suspect]
     Active Substance: TESTOSTERONE
     Indication: ANDROGEN DEFICIENCY
     Dosage: 2 MG, QD
     Route: 062
     Dates: start: 20161014, end: 20161019

REACTIONS (3)
  - Product impurity [Unknown]
  - Application site pain [Recovered/Resolved with Sequelae]
  - Application site vesicles [Recovered/Resolved with Sequelae]

NARRATIVE: CASE EVENT DATE: 20161019
